FAERS Safety Report 21973087 (Version 1)
Quarter: 2023Q1

REPORT INFORMATION
  Report Type: Spontaneous
  Country: CH (occurrence: CH)
  Receive Date: 20230209
  Receipt Date: 20230209
  Transmission Date: 20230418
  Serious: Yes (Other)
  Sender: FDA-Public Use
  Company Number: None

PATIENT
  Age: 64 Year
  Sex: Female
  Weight: 84 kg

DRUGS (2)
  1. AROMASIN [Suspect]
     Active Substance: EXEMESTANE
     Indication: Breast cancer metastatic
     Dosage: UNK (DOSE AND START OF TREATMENT UNKNOWN)
     Route: 048
     Dates: end: 20221212
  2. KISQALI [Suspect]
     Active Substance: RIBOCICLIB
     Indication: Breast cancer metastatic
     Dosage: 600 MG, 1X/DAY (3X200MG PER DAY)
     Route: 048
     Dates: start: 20191001, end: 20221212

REACTIONS (1)
  - Hypersensitivity pneumonitis [Recovered/Resolved]

NARRATIVE: CASE EVENT DATE: 20220801
